FAERS Safety Report 12351522 (Version 1)
Quarter: 2016Q2

REPORT INFORMATION
  Report Type: Spontaneous
  Country: RS (occurrence: RS)
  Receive Date: 20160510
  Receipt Date: 20160510
  Transmission Date: 20160815
  Serious: Yes (Other)
  Sender: FDA-Public Use
  Company Number: RS-MYLANLABS-2016M1019332

PATIENT

DRUGS (1)
  1. DICLOFENAC [Suspect]
     Active Substance: DICLOFENAC
     Indication: PRODUCT USED FOR UNKNOWN INDICATION
     Dosage: 50-150 MG/DAY
     Route: 065

REACTIONS (2)
  - Colitis [Recovering/Resolving]
  - Intestinal diaphragm disease [Recovering/Resolving]
